FAERS Safety Report 6692172-3 (Version None)
Quarter: 2010Q2

REPORT INFORMATION
  Report Type: 
  Country: None (occurrence: None)
  Receive Date: 20100422
  Receipt Date: 20090526
  Transmission Date: 20101027
  Serious: No
  Sender: FDA-Public Use
  Company Number: US-ASTRAZENECA-2004UW17881

PATIENT
  Age: 67 Year
  Sex: Female
  Weight: 52.2 kg

DRUGS (9)
  1. TOPROL-XL [Suspect]
     Indication: HYPERTENSION
     Route: 048
  2. TOPROL-XL [Suspect]
     Indication: ANGINA PECTORIS
     Route: 048
  3. TOPROL-XL [Suspect]
     Indication: TACHYCARDIA
     Route: 048
  4. TOPROL-XL [Suspect]
     Route: 048
  5. TOPROL-XL [Suspect]
     Route: 048
  6. TOPROL-XL [Suspect]
     Route: 048
  7. KLONOPIN [Concomitant]
  8. TYLENOL-500 [Concomitant]
  9. CLARINEX [Concomitant]

REACTIONS (2)
  - HYPERTENSION [None]
  - HYPOTENSION [None]
